FAERS Safety Report 5034955-1 (Version None)
Quarter: 2006Q2

REPORT INFORMATION
  Report Type: 
  Country: None (occurrence: None)
  Receive Date: 20060627
  Receipt Date: 20060616
  Transmission Date: 20061013
  Serious: Yes (Other)
  Sender: FDA-Public Use
  Company Number: ES-JNJFOC-20060603844

PATIENT
  Sex: Female

DRUGS (8)
  1. DURAGESIC-100 [Suspect]
     Route: 062
  2. DURAGESIC-100 [Suspect]
     Indication: CANCER PAIN
     Route: 062
  3. NOLOTIL [Concomitant]
     Route: 065
  4. LEXATIN [Concomitant]
     Route: 065
  5. FLUTOX [Concomitant]
     Route: 065
  6. ATORVASTATIN CALCIUM [Concomitant]
     Route: 065
  7. CHEMOTHERAPY [Concomitant]
     Route: 065
  8. PAROXETINE HCL [Concomitant]
     Route: 065

REACTIONS (4)
  - DYSPNOEA [None]
  - HYPERTENSION [None]
  - TREMOR [None]
  - WRONG TECHNIQUE IN DRUG USAGE PROCESS [None]
